FAERS Safety Report 7901869-6 (Version None)
Quarter: 2011Q4

REPORT INFORMATION
  Report Type: 
  Country: None (occurrence: None)
  Receive Date: 20111104
  Receipt Date: 20111023
  Transmission Date: 20120403
  Serious: Yes (Hospitalization)
  Sender: FDA-Public Use
  Company Number: GB-DEXPHARM-20111399

PATIENT
  Age: 31 Year
  Sex: Female

DRUGS (13)
  1. CODEINE SUL TAB [Suspect]
  2. MIRTAZAPINE [Suspect]
     Dosage: 30 MG AND 15 MG AT NIGHT
     Dates: start: 20100923, end: 20101108
  3. PROCYCLIDINE HYDROCHLORIDE 2MG TAB [Suspect]
     Indication: PSYCHOTIC DISORDER
     Dosage: 5 MG MILLIGRAM(S) 3 IN 1 DAY
     Dates: start: 20110503, end: 20110510
  4. QUETIAPINE [Suspect]
     Indication: PSYCHOTIC DISORDER
     Dosage: 300 MG MILLIGRAM(S)
     Dates: start: 20110224, end: 20110506
  5. OMEPRAZOLE [Suspect]
     Indication: DYSPEPSIA
     Dosage: 20 MG MILLIGRAM(S) 1 IN 1 DAY
  6. DIAZEPAM [Suspect]
     Indication: MUSCLE SPASMS
     Dosage: 5 MG MILLIGRAM(S)
     Dates: start: 20110725
  7. PAROXETINE HCL [Suspect]
     Dosage: 20 MG MILLIGRAM(S) 3 IN 1 DAY
     Dates: start: 20110501
  8. TRAMADOL HCL [Suspect]
     Indication: ANALGESIC THERAPY
     Dosage: 15-30 MG QDS
     Dates: start: 20110615
  9. LORAZEPAM [Suspect]
     Indication: MUSCLE SPASMS
     Dosage: 1 MG MILLIGRAM(S)
     Dates: start: 20110523, end: 20110627
  10. PAROXETINE HCL [Suspect]
     Indication: DEPRESSION
     Dates: start: 19990801
  11. AMITRIPTYLINE HCL [Suspect]
     Indication: MUSCLE SPASMS
     Dosage: 25 MG MILLIGRAM(S) 1 IN 1 DAY
     Dates: start: 20110810
  12. CLONAZEPAM [Suspect]
     Indication: SEDATION
     Dates: start: 20110224, end: 20110410
  13. DOMPERIDONE [Suspect]

REACTIONS (97)
  - APHASIA [None]
  - FATIGUE [None]
  - ANXIETY [None]
  - MUSCLE DISORDER [None]
  - VISUAL IMPAIRMENT [None]
  - VOMITING [None]
  - PAROSMIA [None]
  - SPEECH DISORDER [None]
  - LIP SWELLING [None]
  - HYPOAESTHESIA [None]
  - EYE PAIN [None]
  - MALAISE [None]
  - MUSCLE SPASMS [None]
  - RESTLESS LEGS SYNDROME [None]
  - CONVULSION [None]
  - CONFUSIONAL STATE [None]
  - DEPERSONALISATION [None]
  - FEELING ABNORMAL [None]
  - VIITH NERVE PARALYSIS [None]
  - CONTUSION [None]
  - MANIA [None]
  - SLEEP DISORDER [None]
  - DISTURBANCE IN ATTENTION [None]
  - IRRITABILITY [None]
  - MOOD SWINGS [None]
  - HALLUCINATION, AUDITORY [None]
  - HYPOAESTHESIA ORAL [None]
  - OEDEMA MOUTH [None]
  - COGWHEEL RIGIDITY [None]
  - PAIN IN EXTREMITY [None]
  - MUSCLE RIGIDITY [None]
  - GAIT DISTURBANCE [None]
  - MYALGIA [None]
  - TREMOR [None]
  - NECK PAIN [None]
  - HYPERSOMNIA [None]
  - SUICIDAL IDEATION [None]
  - HYPERHIDROSIS [None]
  - PARAESTHESIA [None]
  - DYSKINESIA [None]
  - PSYCHOTIC DISORDER [None]
  - URINARY RETENTION [None]
  - PUPILLARY REFLEX IMPAIRED [None]
  - PAIN [None]
  - TOXICITY TO VARIOUS AGENTS [None]
  - DRUG INTERACTION [None]
  - DYSPEPSIA [None]
  - NEUROLEPTIC MALIGNANT SYNDROME [None]
  - MATERNAL EXPOSURE DURING PREGNANCY [None]
  - MUSCULOSKELETAL STIFFNESS [None]
  - PREMATURE DELIVERY [None]
  - RESTLESSNESS [None]
  - EMOTIONAL DISORDER [None]
  - DIZZINESS [None]
  - GENERAL PHYSICAL HEALTH DETERIORATION [None]
  - SWOLLEN TONGUE [None]
  - SCRATCH [None]
  - TACHYCARDIA [None]
  - NO THERAPEUTIC RESPONSE [None]
  - NEURALGIA [None]
  - TINNITUS [None]
  - NIGHTMARE [None]
  - PREGNANCY [None]
  - FEELING JITTERY [None]
  - DECREASED APPETITE [None]
  - MENSTRUATION IRREGULAR [None]
  - INCONTINENCE [None]
  - VISION BLURRED [None]
  - SWELLING FACE [None]
  - PRURITUS [None]
  - ASTHENIA [None]
  - H1N1 INFLUENZA [None]
  - INCOHERENT [None]
  - DRUG WITHDRAWAL SYNDROME [None]
  - NERVOUS SYSTEM DISORDER [None]
  - SOMNOLENCE [None]
  - DROOLING [None]
  - ARTHRALGIA [None]
  - SEROTONIN SYNDROME [None]
  - DYSPNOEA [None]
  - HYPOTONIA [None]
  - ROAD TRAFFIC ACCIDENT [None]
  - BACK PAIN [None]
  - HEADACHE [None]
  - FEELING OF DESPAIR [None]
  - AGITATION [None]
  - DEPRESSION [None]
  - BLOOD SODIUM DECREASED [None]
  - HALLUCINATION [None]
  - DELIRIUM [None]
  - CYANOSIS [None]
  - INSOMNIA [None]
  - PALLOR [None]
  - BALANCE DISORDER [None]
  - GASTRIC PH DECREASED [None]
  - SCHIZOPHRENIA [None]
  - PARALYSIS [None]
